FAERS Safety Report 13098834 (Version 2)
Quarter: 2017Q1

REPORT INFORMATION
  Report Type: Spontaneous
  Country: EG (occurrence: EG)
  Receive Date: 20170109
  Receipt Date: 20170124
  Transmission Date: 20170428
  Serious: Yes (Hospitalization, Other)
  Sender: FDA-Public Use
  Company Number: EG-AMGEN-EGYSP2017002385

PATIENT
  Age: 5 Decade
  Sex: Female

DRUGS (2)
  1. ENBREL [Suspect]
     Active Substance: ETANERCEPT
     Indication: RHEUMATOID ARTHRITIS
     Dosage: 50 MG, SINGLE
     Route: 065
     Dates: start: 20161121, end: 20161121
  2. METHOTREXATE. [Suspect]
     Active Substance: METHOTREXATE
     Indication: RHEUMATOID ARTHRITIS
     Dosage: UNK, DAILY
     Route: 065

REACTIONS (6)
  - Loss of consciousness [Recovered/Resolved]
  - Sepsis [Unknown]
  - Incorrect dose administered [Unknown]
  - Stevens-Johnson syndrome [Unknown]
  - Toxicity to various agents [Unknown]
  - Skin ulcer [Recovering/Resolving]

NARRATIVE: CASE EVENT DATE: 201612
